FAERS Safety Report 12577799 (Version 1)
Quarter: 2016Q3

REPORT INFORMATION
  Report Type: Spontaneous
  Country: US (occurrence: None)
  Receive Date: 20160720
  Receipt Date: 20160720
  Transmission Date: 20161109
  Serious: No
  Sender: FDA-Public Use
  Company Number: None

PATIENT
  Age: 62 Year
  Sex: Female
  Weight: 71.67 kg

DRUGS (3)
  1. DEXILANT [Concomitant]
     Active Substance: DEXLANSOPRAZOLE
  2. FLONASE [Concomitant]
     Active Substance: FLUTICASONE PROPIONATE
  3. LEVOFLOXACIN 500MG, 500MG [Suspect]
     Active Substance: LEVOFLOXACIN
     Indication: PNEUMONIA
     Dosage: 10 TABLETS ONCE A DAY
     Route: 048
     Dates: start: 20160407, end: 20160417

REACTIONS (8)
  - Muscle strain [None]
  - Neuralgia [None]
  - Asthenia [None]
  - Musculoskeletal pain [None]
  - Tendon disorder [None]
  - Pain in extremity [None]
  - Neck pain [None]
  - Myalgia [None]

NARRATIVE: CASE EVENT DATE: 20160408
